FAERS Safety Report 6527661-5 (Version None)
Quarter: 2010Q1

REPORT INFORMATION
  Report Type: 
  Country: None (occurrence: None)
  Receive Date: 20100105
  Receipt Date: 20091224
  Transmission Date: 20100710
  Serious: Yes (Hospitalization)
  Sender: FDA-Public Use
  Company Number: US-GILEAD-2009-0026226

PATIENT
  Sex: Female

DRUGS (8)
  1. TRUVADA [Suspect]
     Indication: ANTIRETROVIRAL THERAPY
     Route: 048
     Dates: end: 20090901
  2. REYATAZ [Suspect]
     Indication: ANTIRETROVIRAL THERAPY
     Dates: end: 20090901
  3. NORVIR [Suspect]
     Indication: ANTIRETROVIRAL THERAPY
     Dates: end: 20090901
  4. ATORVASTATIN CALCIUM [Concomitant]
     Indication: HYPERLIPIDAEMIA
     Dates: start: 20081226, end: 20090901
  5. TYLENOL W/ CODEINE [Concomitant]
     Indication: PAIN
  6. GEMFIBROZIL [Concomitant]
  7. NOVOLOG [Concomitant]
     Indication: DIABETES MELLITUS
  8. LANTUS [Concomitant]
     Indication: DIABETES MELLITUS

REACTIONS (1)
  - HEPATITIS [None]
